FAERS Safety Report 15385296 (Version 1)
Quarter: 2018Q3

REPORT INFORMATION
  Report Type: Spontaneous
  Country: US (occurrence: US)
  Receive Date: 20180907
  Receipt Date: 20180907
  Transmission Date: 20181010
  Serious: Yes (Death, Life-Threatening)
  Sender: FDA-Public Use
  Company Number: None

PATIENT
  Sex: Female

DRUGS (22)
  1. AMLODIPINE [Concomitant]
     Active Substance: AMLODIPINE BESYLATE
  2. FEMARA [Concomitant]
     Active Substance: LETROZOLE
  3. DIAZEPAM. [Concomitant]
     Active Substance: DIAZEPAM
  4. TRAMADOL. [Concomitant]
     Active Substance: TRAMADOL
  5. PROVENTIL [Concomitant]
     Active Substance: ALBUTEROL
  6. ACYCLOVIR. [Concomitant]
     Active Substance: ACYCLOVIR
  7. ADVAIR HFA [Concomitant]
     Active Substance: FLUTICASONE PROPIONATE\SALMETEROL XINAFOATE
  8. IBRANCE [Suspect]
     Active Substance: PALBOCICLIB
     Indication: BREAST CANCER FEMALE
     Dosage: ?          OTHER FREQUENCY:QD 21/28;?
     Route: 048
     Dates: start: 20170627
  9. ATROPINE. [Concomitant]
     Active Substance: ATROPINE
  10. HALOPERIDOL. [Concomitant]
     Active Substance: HALOPERIDOL
  11. MULTIVITAMIN [Concomitant]
     Active Substance: VITAMINS
  12. PREVACID [Concomitant]
     Active Substance: LANSOPRAZOLE
  13. NUTRIRENAL [Concomitant]
  14. SYNTHROID [Concomitant]
     Active Substance: LEVOTHYROXINE SODIUM
  15. LORAZEPAM. [Concomitant]
     Active Substance: LORAZEPAM
  16. PROMETHAZINE [Concomitant]
     Active Substance: PROMETHAZINE\PROMETHAZINE HYDROCHLORIDE
  17. MORPHINE SULF [Concomitant]
     Active Substance: MORPHINE SULFATE
  18. OXYBUTYNIN. [Concomitant]
     Active Substance: OXYBUTYNIN CHLORIDE
  19. LORATADINE. [Concomitant]
     Active Substance: LORATADINE
  20. TYLENOL [Concomitant]
     Active Substance: ACETAMINOPHEN
  21. ATROPINE. [Concomitant]
     Active Substance: ATROPINE
  22. HALOPERIDOL. [Concomitant]
     Active Substance: HALOPERIDOL

REACTIONS (1)
  - Death [None]
